FAERS Safety Report 14107384 (Version 1)
Quarter: 2017Q4

REPORT INFORMATION
  Report Type: Spontaneous
  Country: US (occurrence: None)
  Receive Date: 20171019
  Receipt Date: 20171019
  Transmission Date: 20180321
  Serious: Yes (Death, Hospitalization)
  Sender: FDA-Public Use
  Company Number: None

PATIENT
  Age: 61 Year
  Sex: Female
  Weight: 79.9 kg

DRUGS (2)
  1. ETOPOSIDE (VP-16) [Suspect]
     Active Substance: ETOPOSIDE
     Dates: end: 20081120
  2. CISPLATIN. [Suspect]
     Active Substance: CISPLATIN
     Dates: end: 20081118

REACTIONS (7)
  - Febrile neutropenia [None]
  - General physical health deterioration [None]
  - Depression [None]
  - Pancytopenia [None]
  - Dehydration [None]
  - Nausea [None]
  - Diarrhoea [None]

NARRATIVE: CASE EVENT DATE: 20081208
